FAERS Safety Report 9676408 (Version 2)
Quarter: 2013Q4

REPORT INFORMATION
  Report Type: Report from Study
  Country: FR (occurrence: FR)
  Receive Date: 20131107
  Receipt Date: 20131204
  Transmission Date: 20140711
  Serious: Yes (Death)
  Sender: FDA-Public Use
  Company Number: FR-ROCHE-1300245

PATIENT
  Age: 59 Year
  Sex: Female
  Weight: 48 kg

DRUGS (4)
  1. TRASTUZUMAB [Suspect]
     Indication: BREAST CANCER METASTATIC
     Dosage: LAST DOSE PRIOR TO EVENT: 29/OCT/2013 (CYCLE NUMBER 1)
     Route: 037
     Dates: start: 20131029
  2. THIOTEPA [Concomitant]
     Indication: BREAST CANCER
     Route: 037
     Dates: start: 20130924, end: 20131022
  3. NAVELBINE [Concomitant]
     Indication: BREAST CANCER
     Route: 042
     Dates: start: 20130916, end: 20131022
  4. HERCEPTIN [Concomitant]
     Indication: BREAST CANCER
     Route: 042
     Dates: start: 20130916, end: 20131022

REACTIONS (1)
  - Death [Fatal]
